FAERS Safety Report 11167144 (Version 1)
Quarter: 2015Q2

REPORT INFORMATION
  Report Type: Spontaneous
  Country: US (occurrence: None)
  Receive Date: 20150515
  Receipt Date: 20150515
  Transmission Date: 20150821
  Serious: Yes (Other)
  Sender: FDA-Public Use
  Company Number: 111864

PATIENT
  Sex: Male
  Weight: 70.3 kg

DRUGS (4)
  1. CIMZIA [Suspect]
     Active Substance: CERTOLIZUMAB PEGOL
     Indication: RHEUMATOID ARTHRITIS
     Dosage: 400 MG, EV 4 WEEKS
     Dates: start: 2012
  2. FLOMAX [Concomitant]
     Active Substance: TAMSULOSIN HYDROCHLORIDE
  3. PRILOSEC (OMEPRAZOLE) [Concomitant]
     Active Substance: OMEPRAZOLE MAGNESIUM
  4. METHOTREXATE [Concomitant]
     Active Substance: METHOTREXATE

REACTIONS (4)
  - Onychomycosis [None]
  - Pain in extremity [None]
  - Blood pressure increased [None]
  - Malaise [None]

NARRATIVE: CASE EVENT DATE: 2012
